FAERS Safety Report 8198433-3 (Version None)
Quarter: 2012Q1

REPORT INFORMATION
  Report Type: 
  Country: None (occurrence: None)
  Receive Date: 20120309
  Receipt Date: 20120301
  Transmission Date: 20120608
  Serious: Yes (Other)
  Sender: FDA-Public Use
  Company Number: PHHY2012JP017996

PATIENT
  Age: 49 Year
  Sex: Female

DRUGS (1)
  1. MEXILETINE HYDROCHLORIDE [Suspect]
     Indication: NEURALGIA

REACTIONS (6)
  - DRUG RASH WITH EOSINOPHILIA AND SYSTEMIC SYMPTOMS [None]
  - RASH FOLLICULAR [None]
  - ERYTHEMA [None]
  - FACE OEDEMA [None]
  - LYMPHADENOPATHY [None]
  - RASH MACULO-PAPULAR [None]
